FAERS Safety Report 7028093-6 (Version None)
Quarter: 2010Q4

REPORT INFORMATION
  Report Type: 
  Country: None (occurrence: None)
  Receive Date: 20101005
  Receipt Date: 20100922
  Transmission Date: 20110411
  Serious: Yes (Other)
  Sender: FDA-Public Use
  Company Number: SE-ACTELION-A-CH2010-39907

PATIENT
  Sex: Female

DRUGS (2)
  1. BOSENTAN TABLET 125 MG EU [Suspect]
     Indication: PULMONARY ARTERIAL HYPERTENSION
     Dosage: 125 MG, BID
     Dates: start: 20050501
  2. LIPITOR [Concomitant]

REACTIONS (3)
  - CONTUSION [None]
  - MUSCLE ATROPHY [None]
  - MUSCULOSKELETAL PAIN [None]
